FAERS Safety Report 9737397 (Version 6)
Quarter: 2015Q3

REPORT INFORMATION
  Report Type: Spontaneous
  Country: US (occurrence: US)
  Receive Date: 20131206
  Receipt Date: 20150916
  Transmission Date: 20151125
  Serious: Yes (Hospitalization, Disabling, Other)
  Sender: FDA-Public Use
  Company Number: US-009507513-1312USA001270

PATIENT
  Sex: Female
  Weight: 63.49 kg

DRUGS (5)
  1. FOSAMAX [Suspect]
     Active Substance: ALENDRONATE SODIUM
     Indication: OSTEOPOROSIS
     Dosage: 70 MG, QW
     Route: 048
     Dates: start: 20001129, end: 20080131
  2. ALENDRONATE SODIUM. [Suspect]
     Active Substance: ALENDRONATE SODIUM
     Indication: OSTEOPOROSIS
  3. PREMARIN [Concomitant]
     Active Substance: ESTROGENS, CONJUGATED
     Indication: MENOPAUSE
     Dosage: UNK
     Dates: start: 19990405, end: 2008
  4. FOSAMAX [Suspect]
     Active Substance: ALENDRONATE SODIUM
     Indication: OSTEOPENIA
     Dosage: UNK, UNK
     Route: 048
  5. ALENDRONATE SODIUM. [Suspect]
     Active Substance: ALENDRONATE SODIUM
     Indication: OSTEOPENIA
     Dosage: 70 MG, QW
     Route: 048
     Dates: start: 200802, end: 2012

REACTIONS (26)
  - Seizure [Unknown]
  - Neuropathy peripheral [Not Recovered/Not Resolved]
  - Femur fracture [Not Recovered/Not Resolved]
  - Synovial cyst [Unknown]
  - Rib fracture [Unknown]
  - Constipation [Unknown]
  - Hip fracture [Unknown]
  - Cholecystectomy [Unknown]
  - Hypertension [Not Recovered/Not Resolved]
  - Anxiety [Not Recovered/Not Resolved]
  - Hypothyroidism [Unknown]
  - Anaemia [Unknown]
  - Foot fracture [Unknown]
  - Arteriosclerosis [Unknown]
  - Osteoporosis [Unknown]
  - Femur fracture [Unknown]
  - Blood cholesterol increased [Unknown]
  - Rheumatoid arthritis [Unknown]
  - Phlebolith [Unknown]
  - Hysterectomy [Unknown]
  - Muscle spasms [Unknown]
  - Low turnover osteopathy [Unknown]
  - Arthritis [Not Recovered/Not Resolved]
  - Pain [Unknown]
  - Intramedullary rod insertion [Unknown]
  - Incorrect dose administered [Unknown]

NARRATIVE: CASE EVENT DATE: 2000
